FAERS Safety Report 16348173 (Version 1)
Quarter: 2019Q2

REPORT INFORMATION
  Report Type: Spontaneous
  Country: US (occurrence: US)
  Receive Date: 20190523
  Receipt Date: 20190523
  Transmission Date: 20190711
  Serious: Yes (Hospitalization, Other)
  Sender: FDA-Public Use
  Company Number: US-AKORN PHARMACEUTICALS-2019AKN01079

PATIENT
  Age: 18 Year
  Sex: Male
  Weight: 72.56 kg

DRUGS (13)
  1. MYORISAN [Suspect]
     Active Substance: ISOTRETINOIN
     Indication: ACNE CYSTIC
     Dosage: 40 MG, 1X/DAY
     Route: 048
     Dates: start: 20180926, end: 20190414
  2. UNSPECIFIED PILLS [Suspect]
     Active Substance: UNSPECIFIED INGREDIENT
  3. FLONASE [Concomitant]
     Active Substance: FLUTICASONE PROPIONATE
  4. LEVOFLOXACIN. [Concomitant]
     Active Substance: LEVOFLOXACIN
  5. NAPROXEN. [Concomitant]
     Active Substance: NAPROXEN
  6. ZOLOFT [Concomitant]
     Active Substance: SERTRALINE HYDROCHLORIDE
     Dosage: UNK, 1X/DAY
  7. UNSPECIFIED DRUGS [Suspect]
     Active Substance: UNSPECIFIED INGREDIENT
  8. HEROIN [Suspect]
     Active Substance: DIAMORPHINE
  9. METH [Suspect]
     Active Substance: METHAMPHETAMINE
  10. LIDEX [Concomitant]
     Active Substance: FLUOCINONIDE
  11. MYORISAN [Suspect]
     Active Substance: ISOTRETINOIN
     Indication: ACNE
  12. CLONIDINE. [Concomitant]
     Active Substance: CLONIDINE
  13. MELATONIN [Concomitant]
     Active Substance: MELATONIN

REACTIONS (4)
  - Intentional overdose [Recovered/Resolved]
  - Suicide attempt [Recovered/Resolved]
  - Social problem [Unknown]
  - Off label use [Recovered/Resolved]

NARRATIVE: CASE EVENT DATE: 20180926
